FAERS Safety Report 16426770 (Version 1)
Quarter: 2019Q2

REPORT INFORMATION
  Report Type: Spontaneous
  Country: US (occurrence: US)
  Receive Date: 20190613
  Receipt Date: 20190613
  Transmission Date: 20190711
  Serious: Yes (Life-Threatening, Hospitalization)
  Sender: FDA-Public Use
  Company Number: US-TEVA-2019-US-1061369

PATIENT
  Sex: Female

DRUGS (4)
  1. DEXTROSE. [Concomitant]
     Active Substance: DEXTROSE
     Indication: INTERRUPTION OF AORTIC ARCH
  2. ALPROSTADIL. [Suspect]
     Active Substance: ALPROSTADIL
     Indication: VENTRICULAR SEPTAL DEFECT
  3. DEXTROSE. [Concomitant]
     Active Substance: DEXTROSE
     Indication: VENTRICULAR SEPTAL DEFECT
     Dosage: 10 MCG/ML ALPROSTADIL IN 5% GLUCOSE
     Route: 050
  4. ALPROSTADIL. [Suspect]
     Active Substance: ALPROSTADIL
     Indication: INTERRUPTION OF AORTIC ARCH
     Dosage: STRENGTH: 10 MCG/ML IN 5% DEXTROSE
     Route: 050

REACTIONS (6)
  - Infantile apnoea [Recovering/Resolving]
  - Accidental exposure to product [Recovering/Resolving]
  - Bradycardia [Recovering/Resolving]
  - Neonatal hypoxia [Recovering/Resolving]
  - Accidental overdose [Recovering/Resolving]
  - Hypotension [Recovering/Resolving]
